FAERS Safety Report 11069047 (Version 1)
Quarter: 2015Q2

REPORT INFORMATION
  Report Type: Report from Study
  Country: BR (occurrence: BR)
  Receive Date: 20150427
  Receipt Date: 20150427
  Transmission Date: 20150821
  Serious: Yes (Death, Hospitalization)
  Sender: FDA-Public Use
  Company Number: PHHY2015BR047832

PATIENT
  Age: 96 Year
  Sex: Male
  Weight: 50 kg

DRUGS (1)
  1. EXELON PATCH [Suspect]
     Active Substance: RIVASTIGMINE
     Indication: SENILE DEMENTIA
     Dosage: 1 DF, ONE PATCH QD

REACTIONS (8)
  - Abdominal pain upper [Fatal]
  - Sputum discoloured [Fatal]
  - Gastric cancer [Fatal]
  - Haemoptysis [Fatal]
  - Dysphagia [Fatal]
  - Retching [Fatal]
  - Metastases to lung [Fatal]
  - Dyspnoea [Fatal]

NARRATIVE: CASE EVENT DATE: 201410
